FAERS Safety Report 4949532-8 (Version None)
Quarter: 2006Q1

REPORT INFORMATION
  Report Type: 
  Country: None (occurrence: None)
  Receive Date: 20060316
  Receipt Date: 20051121
  Transmission Date: 20060701
  Serious: Yes (Other)
  Sender: FDA-Public Use
  Company Number: DSA_81481_2005

PATIENT
  Age: 49 Year
  Sex: Female
  Weight: 56.6996 kg

DRUGS (3)
  1. XYREM [Suspect]
     Indication: FIBROMYALGIA
     Dosage: 9 G QDAY PO
     Route: 048
     Dates: start: 20050801, end: 20051101
  2. PROVIGIL [Concomitant]
  3. TEGRETOL [Concomitant]

REACTIONS (2)
  - CONVULSION [None]
  - CONVULSIVE THRESHOLD LOWERED [None]
